FAERS Safety Report 7211728-2 (Version None)
Quarter: 2011Q1

REPORT INFORMATION
  Report Type: 
  Country: None (occurrence: None)
  Receive Date: 20110105
  Receipt Date: 20101231
  Transmission Date: 20110831
  Serious: Yes (Other)
  Sender: FDA-Public Use
  Company Number: GB-PFIZER INC-2009298690

PATIENT
  Age: 81 Year
  Sex: Male

DRUGS (5)
  1. ALFACALCIDOL [Suspect]
     Indication: PRODUCT USED FOR UNKNOWN INDICATION
  2. AMLODIPINE BESYLATE [Suspect]
     Indication: PRODUCT USED FOR UNKNOWN INDICATION
  3. RAMIPRIL [Suspect]
     Indication: PRODUCT USED FOR UNKNOWN INDICATION
  4. PARACETAMOL [Suspect]
     Indication: PRODUCT USED FOR UNKNOWN INDICATION
  5. NITROFURANTOIN [Suspect]
     Indication: PROPHYLAXIS
     Dosage: UNK
     Dates: start: 20060101, end: 20060901

REACTIONS (2)
  - OPTIC DISC DISORDER [None]
  - INTRACRANIAL PRESSURE INCREASED [None]
